FAERS Safety Report 4583208-4 (Version None)
Quarter: 2005Q1

REPORT INFORMATION
  Report Type: 
  Country: None (occurrence: None)
  Receive Date: 20050125
  Receipt Date: 20041119
  Transmission Date: 20050727
  Serious: No
  Sender: FDA-Public Use
  Company Number: USA041184150

PATIENT
  Age: 65 Year
  Sex: Female

DRUGS (4)
  1. FORTEO [Suspect]
     Indication: OSTEOPOROSIS
     Dates: start: 20041117
  2. ENBREL [Concomitant]
  3. PREDNISONE [Concomitant]
  4. FOSAMAX [Concomitant]

REACTIONS (3)
  - ABDOMINAL PAIN [None]
  - FEELING ABNORMAL [None]
  - PALPITATIONS [None]
